FAERS Safety Report 4365499-8 (Version None)
Quarter: 2004Q2

REPORT INFORMATION
  Report Type: 
  Country: None (occurrence: None)
  Receive Date: 20040526
  Receipt Date: 20040329
  Transmission Date: 20050107
  Serious: Yes (Hospitalization)
  Sender: FDA-Public Use
  Company Number: GB-MERCK-0403GBR00294

PATIENT
  Sex: Female

DRUGS (2)
  1. VIOXX [Suspect]
     Indication: ANALGESIC EFFECT
     Route: 048
  2. VIOXX [Suspect]
     Route: 048
     Dates: start: 20040101

REACTIONS (2)
  - ASTHMA [None]
  - DRUG INEFFECTIVE [None]
